FAERS Safety Report 7395182-6 (Version None)
Quarter: 2011Q2

REPORT INFORMATION
  Report Type: 
  Country: None (occurrence: None)
  Receive Date: 20110405
  Receipt Date: 20110404
  Transmission Date: 20111010
  Serious: Yes (Other)
  Sender: FDA-Public Use
  Company Number: US-CEPHALON-2009029432

PATIENT
  Sex: Female

DRUGS (1)
  1. FENTORA [Suspect]
     Route: 002

REACTIONS (3)
  - DRUG ABUSE [None]
  - LETHARGY [None]
  - SOMNOLENCE [None]
